FAERS Safety Report 23967411 (Version 1)
Quarter: 2024Q2

REPORT INFORMATION
  Report Type: Spontaneous
  Country: US (occurrence: US)
  Receive Date: 20240612
  Receipt Date: 20240612
  Transmission Date: 20240715
  Serious: Yes (Hospitalization, Other)
  Sender: FDA-Public Use
  Company Number: US-BAYER-2024A082190

PATIENT
  Age: 22 Year
  Sex: Female

DRUGS (2)
  1. ALKA-SELTZER HANGOVER RELIEF [Suspect]
     Active Substance: ASPIRIN\CAFFEINE
     Indication: Hangover
     Dosage: 1 DF, ONCE
     Dates: start: 20240426, end: 20240426
  2. LAMOTRIGINE [Concomitant]
     Active Substance: LAMOTRIGINE
     Indication: Epilepsy
     Dosage: UNK
     Dates: start: 20180901

REACTIONS (7)
  - Palpitations [Recovered/Resolved]
  - Dyspnoea [Recovered/Resolved]
  - Unresponsive to stimuli [Unknown]
  - Heart rate increased [None]
  - Vomiting [Unknown]
  - Dizziness [None]
  - Dry mouth [Unknown]

NARRATIVE: CASE EVENT DATE: 20240426
